FAERS Safety Report 4952734-8 (Version None)
Quarter: 2006Q1

REPORT INFORMATION
  Report Type: 
  Country: None (occurrence: None)
  Receive Date: 20060317
  Receipt Date: 20040720
  Transmission Date: 20060701
  Serious: Yes (Death, Hospitalization)
  Sender: FDA-Public Use
  Company Number: HQWYE641716DEC03

PATIENT
  Age: 76 Year
  Sex: Male
  Weight: 89.89 kg

DRUGS (20)
  1. MYLOTARG [Suspect]
     Indication: ACUTE MYELOID LEUKAEMIA
     Dosage: 9 MG/M^2 1X PER 1 DAY, INTRAVENOUS
     Route: 042
     Dates: start: 20031015, end: 20031015
  2. MYLOTARG [Suspect]
     Indication: ACUTE MYELOID LEUKAEMIA
     Dosage: 9 MG/M^2 1X PER 1 DAY, INTRAVENOUS
     Route: 042
     Dates: start: 20031106, end: 20031106
  3. NPH INSULIN [Concomitant]
  4. MEROPENEM (MEROPENEM) [Concomitant]
  5. MORPHINE SULFATE [Concomitant]
  6. PHENERGAN (PROMETHAZINE HYDROCHLORIDE) [Concomitant]
  7. DARVON [Concomitant]
  8. URSODIOL (URSODEOXYCHOLIC ACID) [Concomitant]
  9. VANCOMYCIN [Concomitant]
  10. AMBIEN [Concomitant]
  11. INSULIN (INSULIN) [Concomitant]
  12. ACETAMINOPHEN [Concomitant]
  13. ACYCLOVIR [Concomitant]
  14. AMILORIDE (AMILORIDE) [Concomitant]
  15. CIPROFLOXACIN HCL [Concomitant]
  16. BENADRYL [Concomitant]
  17. VASOTEC [Concomitant]
  18. LASIX [Concomitant]
  19. GLUCOTROL [Concomitant]
  20. HEPARIN [Concomitant]

REACTIONS (13)
  - ACIDOSIS [None]
  - ASCITES [None]
  - CONDITION AGGRAVATED [None]
  - DIALYSIS [None]
  - ENTEROCOCCAL INFECTION [None]
  - HEPATOMEGALY [None]
  - HYPOTENSION [None]
  - LIVER FUNCTION TEST ABNORMAL [None]
  - RENAL FAILURE [None]
  - RENAL FAILURE ACUTE [None]
  - RESPIRATORY FAILURE [None]
  - SEPSIS [None]
  - WEIGHT INCREASED [None]
